FAERS Safety Report 23902244 (Version 1)
Quarter: 2024Q2

REPORT INFORMATION
  Report Type: Spontaneous
  Country: US (occurrence: None)
  Receive Date: 20240527
  Receipt Date: 20240527
  Transmission Date: 20240716
  Serious: No
  Sender: FDA-Public Use
  Company Number: US-ROCHE-3406306

PATIENT
  Sex: Female

DRUGS (5)
  1. ACTEMRA [Suspect]
     Active Substance: TOCILIZUMAB
     Indication: Arthritis
     Dosage: (STRENGTH: 162 MG/0.9 ML), ACT-PEN
     Route: 058
     Dates: start: 20230713
  2. ACTEMRA [Suspect]
     Active Substance: TOCILIZUMAB
  3. AYGESTIN [Concomitant]
     Active Substance: NORETHINDRONE ACETATE
  4. METHYLPHENIDATE [Concomitant]
     Active Substance: METHYLPHENIDATE
  5. RIZATRIPTAN BENZOATE [Concomitant]
     Active Substance: RIZATRIPTAN BENZOATE

REACTIONS (1)
  - Abdominal pain upper [Unknown]
